FAERS Safety Report 12099695 (Version 1)
Quarter: 2016Q1

REPORT INFORMATION
  Report Type: Spontaneous
  Country: GB (occurrence: GB)
  Receive Date: 20160222
  Receipt Date: 20160222
  Transmission Date: 20160526
  Serious: Yes (Other)
  Sender: FDA-Public Use
  Company Number: GB-TEVA-634747ACC

PATIENT
  Age: 68 Year
  Sex: Female
  Weight: 107 kg

DRUGS (1)
  1. ERYTHROMYCIN. [Suspect]
     Active Substance: ERYTHROMYCIN
     Dates: start: 20010101

REACTIONS (2)
  - Rash macular [Unknown]
  - Swelling face [Unknown]

NARRATIVE: CASE EVENT DATE: 20010101
